FAERS Safety Report 8224089-7 (Version None)
Quarter: 2012Q1

REPORT INFORMATION
  Report Type: 
  Country: None (occurrence: None)
  Receive Date: 20120320
  Receipt Date: 20120320
  Transmission Date: 20120608
  Serious: Yes (Hospitalization)
  Sender: FDA-Public Use
  Company Number: None

PATIENT
  Age: 50 Year
  Sex: Male
  Weight: 80.5 kg

DRUGS (1)
  1. RITUXIMAB [Suspect]
     Dosage: 675 MG
     Dates: start: 20111201

REACTIONS (2)
  - FATIGUE [None]
  - MALAISE [None]
